FAERS Safety Report 10273425 (Version 1)
Quarter: 2014Q2

REPORT INFORMATION
  Report Type: Spontaneous
  Country: US (occurrence: None)
  Receive Date: 20140630
  Receipt Date: 20140630
  Transmission Date: 20141212
  Serious: Yes (Life-Threatening)
  Sender: FDA-Public Use
  Company Number: None

PATIENT
  Age: 64 Year
  Sex: Male
  Weight: 84.6 kg

DRUGS (8)
  1. SOVALDI [Suspect]
     Indication: HEPATITIS C
     Route: 048
  2. OLYSIO [Suspect]
     Route: 048
  3. XIFAXAN [Concomitant]
  4. LEVOFLOXACIN [Concomitant]
  5. HYDROXIZINE [Concomitant]
  6. VIT D [Concomitant]
  7. AZITHROMYCIN [Concomitant]
  8. ETHAMBUTOL [Concomitant]

REACTIONS (8)
  - Respiratory distress [None]
  - Anion gap increased [None]
  - Renal failure [None]
  - Lactic acidosis [None]
  - Cryptococcal fungaemia [None]
  - Liver function test abnormal [None]
  - Hepatic cirrhosis [None]
  - Life expectancy shortened [None]
